FAERS Safety Report 18160799 (Version 1)
Quarter: 2020Q3

REPORT INFORMATION
  Report Type: Spontaneous
  Country: US (occurrence: US)
  Receive Date: 20200818
  Receipt Date: 20200818
  Transmission Date: 20201103
  Serious: No
  Sender: FDA-Public Use
  Company Number: US-COLGATE PALMOLIVE COMPANY-20190701909

PATIENT
  Age: 72 Year
  Sex: Female

DRUGS (2)
  1. AMLODIPINE [Concomitant]
     Active Substance: AMLODIPINE BESYLATE
  2. COLGATE TOTAL WHITENING [Suspect]
     Active Substance: SODIUM FLUORIDE\TRICLOSAN
     Dosage: FILLS HER BRUSH 1/2 FULL , BID
     Dates: end: 2019

REACTIONS (2)
  - Oral pain [Recovered/Resolved]
  - Gingival discolouration [Recovered/Resolved]

NARRATIVE: CASE EVENT DATE: 201907
